FAERS Safety Report 20669884 (Version 1)
Quarter: 2022Q2

REPORT INFORMATION
  Report Type: 
  Country: PR (occurrence: None)
  Receive Date: 20220404
  Receipt Date: 20220404
  Transmission Date: 20220721
  Serious: No
  Sender: FDA-Public Use
  Company Number: PR-BIOVITRUM-2017PR0783

PATIENT
  Age: 5 Year
  Sex: Female

DRUGS (1)
  1. ORFADIN [Suspect]
     Active Substance: NITISINONE
     Indication: Tyrosinaemia
     Route: 048
     Dates: start: 20140404

REACTIONS (3)
  - Hepatic steatosis [Unknown]
  - Hepatomegaly [Unknown]
  - Vision blurred [Unknown]

NARRATIVE: CASE EVENT DATE: 20170701
